FAERS Safety Report 7973130-5 (Version None)
Quarter: 2011Q4

REPORT INFORMATION
  Report Type: 
  Country: None (occurrence: None)
  Receive Date: 20111213
  Receipt Date: 20111207
  Transmission Date: 20120403
  Serious: Yes (Death)
  Sender: FDA-Public Use
  Company Number: JP-ASTELLAS-2011JP009072

PATIENT
  Age: 68 Year
  Sex: Male

DRUGS (2)
  1. VALPROATE SODIUM [Suspect]
     Dosage: 400 MG, UNKNOWN/D
     Route: 048
     Dates: end: 20111122
  2. PROGRAF [Suspect]
     Dosage: 0.47 MG, UNKNOWN/D
     Route: 041
     Dates: start: 20111110, end: 20111122

REACTIONS (1)
  - DISORIENTATION [None]
